FAERS Safety Report 16410479 (Version 4)
Quarter: 2020Q3

REPORT INFORMATION
  Report Type: Report from Study
  Country: US (occurrence: US)
  Receive Date: 20190610
  Receipt Date: 20191015
  Transmission Date: 20201105
  Serious: Yes (Hospitalization, Other)
  Sender: FDA-Public Use
  Company Number: US-JNJFOC-20190543067

PATIENT
  Age: 39 Year
  Sex: Male
  Weight: 91 kg

DRUGS (24)
  1. CARBOXYMETHYLCELLULOSE [Concomitant]
     Active Substance: CARBOXYMETHYLCELLULOSE
     Dosage: AS NEEDED FOR DRY EYES?ONE DROP, BOTH EYES, EVERY 2 HOURS WHILE AWAKE
  2. CELEXA [Concomitant]
     Active Substance: CITALOPRAM HYDROBROMIDE
     Route: 048
  3. AMBIEN [Concomitant]
     Active Substance: ZOLPIDEM TARTRATE
  4. OMEGA 3 FISH OILS [Concomitant]
     Active Substance: OMEGA-3 FATTY ACIDS
  5. MIDODRINE [Concomitant]
     Active Substance: MIDODRINE
     Route: 048
  6. COENZYME Q10 [Concomitant]
     Active Substance: DIETARY SUPPLEMENT\UBIDECARENONE
     Route: 048
  7. EMLA [Concomitant]
     Active Substance: LIDOCAINE\PRILOCAINE
     Route: 061
  8. MAGNESIUM OXIDE. [Concomitant]
     Active Substance: MAGNESIUM OXIDE
     Route: 048
  9. VALTREX [Concomitant]
     Active Substance: VALACYCLOVIR HYDROCHLORIDE
     Route: 048
  10. PROAMATINE [Concomitant]
     Active Substance: MIDODRINE HYDROCHLORIDE
     Dosage: EVERY 8 HOUR AS NEEDED WHEN SYSTOLIC BP {90MM/HG WITHOUT SYMPTOM/SYSTOLIC BP {100MM/HG WITH SYMPTOM.
  11. DEXAMETHASONE. [Suspect]
     Active Substance: DEXAMETHASONE
     Indication: AMYLOIDOSIS
     Route: 048
  12. FLORINEF ACETATE [Concomitant]
     Active Substance: FLUDROCORTISONE ACETATE
  13. IXAZOMIB [Suspect]
     Active Substance: IXAZOMIB
     Indication: AMYLOIDOSIS
     Route: 048
  14. DEXAMETHASONE. [Suspect]
     Active Substance: DEXAMETHASONE
     Indication: AMYLOIDOSIS
     Route: 042
  15. ROXICODONE [Concomitant]
     Active Substance: OXYCODONE HYDROCHLORIDE
  16. LYRICA [Concomitant]
     Active Substance: PREGABALIN
     Route: 048
  17. ULORIC [Concomitant]
     Active Substance: FEBUXOSTAT
     Route: 048
  18. DARATUMUMAB [Suspect]
     Active Substance: DARATUMUMAB
     Indication: AMYLOIDOSIS
     Route: 042
     Dates: start: 20190322
  19. VITAMIN D3 [Concomitant]
     Active Substance: CHOLECALCIFEROL
  20. LAMOTRIGINE. [Concomitant]
     Active Substance: LAMOTRIGINE
  21. XYZAL [Concomitant]
     Active Substance: LEVOCETIRIZINE DIHYDROCHLORIDE
  22. MELATONIN [Concomitant]
     Active Substance: MELATONIN
  23. PROTONIX [Concomitant]
     Active Substance: PANTOPRAZOLE SODIUM
     Route: 048
  24. MIDODRINE [Concomitant]
     Active Substance: MIDODRINE
     Route: 048

REACTIONS (3)
  - Diverticulitis [Unknown]
  - Syncope [Recovered/Resolved]
  - Colitis [Unknown]

NARRATIVE: CASE EVENT DATE: 20190529
